FAERS Safety Report 7067199-2 (Version None)
Quarter: 2010Q4

REPORT INFORMATION
  Report Type: 
  Country: None (occurrence: None)
  Receive Date: 20101028
  Receipt Date: 20101014
  Transmission Date: 20110411
  Serious: No
  Sender: FDA-Public Use
  Company Number: 2007BI023340

PATIENT
  Age: 38 Year
  Sex: Female

DRUGS (4)
  1. TYSABRI [Suspect]
     Indication: MULTIPLE SCLEROSIS
     Route: 042
     Dates: start: 20061109, end: 20061109
  2. TYSABRI [Suspect]
     Route: 042
     Dates: start: 20071018, end: 20071018
  3. TYSABRI [Suspect]
     Route: 042
     Dates: start: 20100817
  4. ATIVAN [Concomitant]
     Indication: INFUSION RELATED REACTION
     Route: 048
     Dates: start: 20101013

REACTIONS (6)
  - BONE PAIN [None]
  - CHEST PAIN [None]
  - CHILLS [None]
  - INFUSION RELATED REACTION [None]
  - MUSCLE SPASMS [None]
  - TREMOR [None]
